FAERS Safety Report 13116319 (Version 2)
Quarter: 2017Q1

REPORT INFORMATION
  Report Type: Spontaneous
  Country: US (occurrence: US)
  Receive Date: 20170116
  Receipt Date: 20170118
  Transmission Date: 20170428
  Serious: No
  Sender: FDA-Public Use
  Company Number: US-BIOGEN-2017BI00341598

PATIENT
  Sex: Female

DRUGS (2)
  1. TYSABRI [Suspect]
     Active Substance: NATALIZUMAB
     Indication: MULTIPLE SCLEROSIS
     Dosage: INFUSED OVER 1 HOUR
     Route: 042
     Dates: start: 20070104, end: 20120907
  2. TYSABRI [Suspect]
     Active Substance: NATALIZUMAB
     Route: 065
     Dates: end: 201611

REACTIONS (6)
  - Hemianaesthesia [Not Recovered/Not Resolved]
  - Visual impairment [Unknown]
  - Central nervous system lesion [Unknown]
  - Abasia [Unknown]
  - Hypoaesthesia [Not Recovered/Not Resolved]
  - Musculoskeletal disorder [Unknown]
